FAERS Safety Report 6263703-2 (Version None)
Quarter: 2009Q3

REPORT INFORMATION
  Report Type: 
  Country: None (occurrence: None)
  Receive Date: 20090707
  Receipt Date: 20090707
  Transmission Date: 20100115
  Serious: No
  Sender: FDA-Public Use
  Company Number: None

PATIENT
  Age: 59 Year
  Sex: Male
  Weight: 99.7913 kg

DRUGS (1)
  1. ZICAM RAPID MELTS CHERRY ZICAM [Suspect]
     Indication: NASOPHARYNGITIS
     Dosage: RAPID MELTS CHERRY 1 TABLET 3 HRS PO
     Route: 048
     Dates: start: 20090306, end: 20090313

REACTIONS (2)
  - AGEUSIA [None]
  - ANOSMIA [None]
